FAERS Safety Report 7552957-8 (Version None)
Quarter: 2011Q2

REPORT INFORMATION
  Report Type: 
  Country: None (occurrence: None)
  Receive Date: 20110616
  Receipt Date: 20110301
  Transmission Date: 20111010
  Serious: No
  Sender: FDA-Public Use
  Company Number: US-ASTRAZENECA-2011SE11210

PATIENT
  Age: 82 Year
  Sex: Female
  Weight: 64.4 kg

DRUGS (5)
  1. ATENOLOL [Concomitant]
     Indication: HYPERTENSION
  2. LISINOPRIL [Concomitant]
     Indication: HYPERTENSION
  3. FASLODEX [Suspect]
     Indication: BREAST CANCER METASTATIC
     Route: 030
     Dates: start: 20110201
  4. SYNTHROID [Concomitant]
     Indication: THYROID DISORDER
  5. NIFEDIPINE [Concomitant]
     Indication: HYPERTENSION

REACTIONS (1)
  - INTERNATIONAL NORMALISED RATIO DECREASED [None]
